FAERS Safety Report 8956407 (Version 2)
Quarter: 2012Q4

REPORT INFORMATION
  Report Type: 
  Country: SK (occurrence: SK)
  Receive Date: 20121210
  Receipt Date: 20121221
  Transmission Date: 20130627
  Serious: Yes (Hospitalization)
  Sender: FDA-Public Use
  Company Number: SK-ELI_LILLY_AND_COMPANY-SK201212000146

PATIENT
  Age: 54 Year
  Sex: Male

DRUGS (6)
  1. EFIENT [Suspect]
     Indication: ACUTE MYOCARDIAL INFARCTION
     Dosage: 10 mg, qd
     Route: 048
     Dates: start: 20121113, end: 20121118
  2. EFIENT [Suspect]
     Dosage: 10 mg, qd
     Route: 048
  3. ANOPYRIN [Concomitant]
     Dosage: 100 mg, qd
  4. TRANDOLAPRIL [Concomitant]
     Dosage: 4 mg, qd
  5. BISOPROLOL [Concomitant]
     Dosage: 5 mg, qd
  6. SORTIS [Concomitant]
     Dosage: 80 mg, qd

REACTIONS (3)
  - Thrombosis in device [Unknown]
  - Myocardial infarction [Recovered/Resolved]
  - Drug dose omission [Recovered/Resolved]
